FAERS Safety Report 13801453 (Version 1)
Quarter: 2017Q3

REPORT INFORMATION
  Report Type: Spontaneous
  Country: US (occurrence: US)
  Receive Date: 20170727
  Receipt Date: 20170727
  Transmission Date: 20171127
  Serious: No
  Sender: FDA-Public Use
  Company Number: US-SEBELA IRELAND LIMITED-2016SEB01548

PATIENT
  Sex: Female

DRUGS (1)
  1. BRISDELLE [Suspect]
     Active Substance: PAROXETINE MESYLATE
     Indication: HOT FLUSH
     Dosage: 7.5 MG, 1X/DAY
     Route: 048
     Dates: start: 2015

REACTIONS (14)
  - Lethargy [Unknown]
  - Cough [Unknown]
  - Vomiting [Unknown]
  - Anxiety [Unknown]
  - Temporomandibular joint syndrome [Unknown]
  - Nausea [Unknown]
  - Malaise [Unknown]
  - Fatigue [Unknown]
  - Weight increased [Unknown]
  - Bruxism [Unknown]
  - Tooth fracture [Unknown]
  - Headache [Unknown]
  - Nasopharyngitis [Unknown]
  - Therapy cessation [Unknown]
